FAERS Safety Report 9404770 (Version 1)
Quarter: 2013Q3

REPORT INFORMATION
  Report Type: Spontaneous
  Country: DE (occurrence: DE)
  Receive Date: 20130717
  Receipt Date: 20130717
  Transmission Date: 20140515
  Serious: Yes (Other)
  Sender: FDA-Public Use
  Company Number: DE-US-EMD SERONO, INC.-7224213

PATIENT
  Age: 7 Year
  Sex: Female
  Weight: 14 kg

DRUGS (2)
  1. SAIZEN [Suspect]
     Indication: HYPOSMIA
     Route: 058
     Dates: start: 20110610, end: 20130710
  2. SAIZEN [Suspect]
     Indication: SMALL FOR DATES BABY

REACTIONS (1)
  - Type 2 diabetes mellitus [Not Recovered/Not Resolved]
